FAERS Safety Report 7586793-3 (Version None)
Quarter: 2011Q3

REPORT INFORMATION
  Report Type: 
  Country: None (occurrence: None)
  Receive Date: 20110701
  Receipt Date: 20110616
  Transmission Date: 20111222
  Serious: Yes (Hospitalization)
  Sender: FDA-Public Use
  Company Number: PL-WATSON-2011-09550

PATIENT
  Age: 19 Year
  Sex: Male

DRUGS (1)
  1. TESTOSTERONE CYPIONATE [Suspect]
     Indication: KLINEFELTER'S SYNDROME
     Dosage: UNK
     Route: 030

REACTIONS (8)
  - IRRITABILITY [None]
  - MOOD ALTERED [None]
  - DYSPHORIA [None]
  - SUICIDAL IDEATION [None]
  - CONFABULATION [None]
  - IMPULSE-CONTROL DISORDER [None]
  - AGGRESSION [None]
  - DISINHIBITION [None]
